FAERS Safety Report 6738631-6 (Version None)
Quarter: 2010Q2

REPORT INFORMATION
  Report Type: 
  Country: None (occurrence: None)
  Receive Date: 20100524
  Receipt Date: 20100517
  Transmission Date: 20101027
  Serious: Yes (Hospitalization)
  Sender: FDA-Public Use
  Company Number: FR-PFIZER INC-2010036339

PATIENT
  Age: 48 Year
  Sex: Female

DRUGS (3)
  1. LYRICA [Suspect]
     Dosage: 150 MG, 2X/DAY
     Route: 048
     Dates: start: 20100224, end: 20100308
  2. TETRAZEPAM [Suspect]
     Dosage: 50 MG, 2X/DAY
     Route: 048
     Dates: start: 20100216, end: 20100308
  3. VANCOMYCIN [Suspect]
     Dosage: 1 G, 2X/DAY
     Route: 042
     Dates: start: 20100224, end: 20100308

REACTIONS (1)
  - DRUG RASH WITH EOSINOPHILIA AND SYSTEMIC SYMPTOMS [None]
